FAERS Safety Report 19844658 (Version 1)
Quarter: 2021Q3

REPORT INFORMATION
  Report Type: Spontaneous
  Country: TR (occurrence: TR)
  Receive Date: 20210917
  Receipt Date: 20210917
  Transmission Date: 20211014
  Serious: Yes (Hospitalization)
  Sender: FDA-Public Use
  Company Number: TR-NOVOPROD-845128

PATIENT
  Sex: Female
  Weight: 3.8 kg

DRUGS (2)
  1. NOVORAPID [Suspect]
     Active Substance: INSULIN ASPART
     Indication: GESTATIONAL DIABETES
     Dosage: 11 IU, QD(5 IU IN MORNING, 3 IU IN EVENING AND NIGHT)
     Route: 064
     Dates: start: 20210504, end: 20210802
  2. LEVEMIR [Suspect]
     Active Substance: INSULIN DETEMIR
     Indication: GESTATIONAL DIABETES
     Dosage: 5 IU, QD (AT NIGHT)
     Route: 064
     Dates: start: 20210504, end: 20210802

REACTIONS (2)
  - Foetal exposure during pregnancy [Recovered/Resolved]
  - Pulmonary oedema neonatal [Recovered/Resolved]

NARRATIVE: CASE EVENT DATE: 20210504
